FAERS Safety Report 10251055 (Version 1)
Quarter: 2014Q2

REPORT INFORMATION
  Report Type: Spontaneous
  Country: US (occurrence: US)
  Receive Date: 20140620
  Receipt Date: 20140620
  Transmission Date: 20141212
  Serious: Yes (Other)
  Sender: FDA-Public Use
  Company Number: US-009507513-1406USA008889

PATIENT
  Sex: Female

DRUGS (2)
  1. JANUVIA [Suspect]
     Indication: DIABETES MELLITUS
     Dosage: UNK
     Route: 048
     Dates: end: 201406
  2. VICTOZA [Suspect]
     Indication: DIABETES MELLITUS

REACTIONS (3)
  - Pancreatitis [Unknown]
  - Lipase abnormal [Unknown]
  - Abdominal pain [Unknown]
